FAERS Safety Report 21924313 (Version 1)
Quarter: 2023Q1

REPORT INFORMATION
  Report Type: Report from Study
  Country: FR (occurrence: FR)
  Receive Date: 20230130
  Receipt Date: 20230130
  Transmission Date: 20230418
  Serious: Yes (Other)
  Sender: FDA-Public Use
  Company Number: FR-SUN PHARMACEUTICAL INDUSTRIES LTD-2023R1-375708

PATIENT
  Sex: Male

DRUGS (3)
  1. PREDNISONE [Suspect]
     Active Substance: PREDNISONE
     Indication: Rheumatic disorder
     Dosage: 1 MILLIGRAM/KILOGRAM
  2. PREDNISONE [Suspect]
     Active Substance: PREDNISONE
     Dosage: 5 MG
  3. TOCILIZUMAB [Concomitant]
     Active Substance: TOCILIZUMAB
     Indication: Rheumatic disorder
     Dosage: 50 MILLIGRAM
     Route: 065

REACTIONS (1)
  - Condition aggravated [Unknown]
